FAERS Safety Report 4394770-9 (Version None)
Quarter: 2004Q3

REPORT INFORMATION
  Report Type: 
  Country: None (occurrence: None)
  Receive Date: 20040707
  Receipt Date: 20040622
  Transmission Date: 20050211
  Serious: Yes (Hospitalization)
  Sender: FDA-Public Use
  Company Number: 207332

PATIENT
  Age: 55 Year
  Sex: Female
  Weight: 52.3 kg

DRUGS (13)
  1. AVASTIN [Suspect]
     Indication: COLORECTAL CANCER
     Dosage: 5 MG/KG, Q2W, INTRAVENOUS
     Route: 042
     Dates: start: 20040322
  2. ELOXATIN [Suspect]
     Indication: COLORECTAL CANCER
     Dosage: 85 MG/M2, Q2W, INTRAVENOUS
     Route: 042
     Dates: start: 20040322
  3. FLUOROURACIL [Suspect]
     Indication: COLORECTAL CANCER
     Dosage: 500 MG/M2, 1/WEEK, INTRAVENOUS
     Route: 042
     Dates: start: 20040322
  4. LEUCOVORIN CALCIUM [Suspect]
     Indication: COLORECTAL CANCER
     Dosage: 20 MG/M2, 1/WEEK, INTRAVENOUS
     Route: 042
     Dates: start: 20040322
  5. ZOLPIDEM TARTRATE [Concomitant]
  6. HYDROCODONE + ACETAMINOPHEN (ACETAMINOPHEN, HYDROCODONE BITARTRATE) [Concomitant]
  7. DIAZEPAM [Concomitant]
  8. LOPERAMIDE [Concomitant]
  9. DRONABINOL (DRONABINOL) [Concomitant]
  10. PROMETHEZINE HCL [Concomitant]
  11. DIPHENHYDRAMINE (DIPHENHYDRAMINE NOS) [Concomitant]
  12. LORAZEPAM [Concomitant]
  13. WARFARIN SODIUM [Concomitant]

REACTIONS (14)
  - ABDOMINAL PAIN [None]
  - ASTHENIA [None]
  - BLOOD GLUCOSE INCREASED [None]
  - BLOOD POTASSIUM DECREASED [None]
  - DEHYDRATION [None]
  - DIZZINESS [None]
  - HEART RATE INCREASED [None]
  - METASTASES TO LUNG [None]
  - MYALGIA [None]
  - NAUSEA [None]
  - PAIN [None]
  - RESPIRATORY RATE INCREASED [None]
  - VOMITING [None]
  - WHITE BLOOD CELL COUNT DECREASED [None]
